FAERS Safety Report 11212773 (Version 2)
Quarter: 2015Q3

REPORT INFORMATION
  Report Type: Spontaneous
  Country: FR (occurrence: FR)
  Receive Date: 20150623
  Receipt Date: 20150807
  Transmission Date: 20151125
  Serious: Yes (Hospitalization)
  Sender: FDA-Public Use
  Company Number: FR-BAYER-2015-351199

PATIENT
  Age: 51 Year
  Sex: Male

DRUGS (7)
  1. NEXAVAR [Suspect]
     Active Substance: SORAFENIB
     Dosage: 200 MG, BID
     Route: 048
     Dates: start: 201411, end: 201501
  2. NEXAVAR [Suspect]
     Active Substance: SORAFENIB
     Dosage: 200 MG, BID
     Route: 048
     Dates: start: 20150310
  3. NEXAVAR [Suspect]
     Active Substance: SORAFENIB
     Dosage: 400 MG, BID
     Route: 048
     Dates: start: 201411, end: 201411
  4. NEXAVAR [Suspect]
     Active Substance: SORAFENIB
     Dosage: 600 MG, QD
     Route: 048
     Dates: start: 201501, end: 20150218
  5. SKENAN [Concomitant]
     Active Substance: MORPHINE SULFATE
     Dosage: 1-0-1
     Route: 048
  6. LEVOTHYROX [Concomitant]
     Active Substance: LEVOTHYROXINE
  7. ACTISKENAN [Concomitant]
     Active Substance: MORPHINE SULFATE
     Dosage: UNK

REACTIONS (1)
  - Intestinal obstruction [Recovered/Resolved]

NARRATIVE: CASE EVENT DATE: 20150218
